FAERS Safety Report 13402407 (Version 2)
Quarter: 2017Q3

REPORT INFORMATION
  Report Type: Other
  Country: GB (occurrence: GB)
  Receive Date: 20170404
  Receipt Date: 20170726
  Transmission Date: 20171127
  Serious: Yes (Hospitalization, Disabling)
  Sender: FDA-Public Use
  Company Number: GB-ALSI-201700094

PATIENT
  Age: 27 Year
  Sex: Female

DRUGS (2)
  1. METHYLCOBALAMIN. [Concomitant]
     Active Substance: METHYLCOBALAMIN
  2. NITROUS OXIDE. [Suspect]
     Active Substance: NITROUS OXIDE
     Indication: PAIN
     Route: 055
     Dates: start: 19901024

REACTIONS (12)
  - Abdominal pain upper [None]
  - Diarrhoea [None]
  - Breast pain [None]
  - Mastitis [None]
  - Ear infection [None]
  - Thyrotoxic crisis [None]
  - Goitre [None]
  - Infectious thyroiditis [None]
  - Fatigue [None]
  - Malaise [None]
  - Sensory loss [None]
  - Circulatory collapse [None]
